FAERS Safety Report 4275825-6 (Version None)
Quarter: 2004Q1

REPORT INFORMATION
  Report Type: 
  Country: None (occurrence: None)
  Receive Date: 20040121
  Receipt Date: 20010912
  Transmission Date: 20041129
  Serious: No
  Sender: FDA-Public Use
  Company Number: US-GLAXOSMITHKLINE-A0161464A

PATIENT
  Age: 48 Year
  Sex: Male

DRUGS (1)
  1. VALTREX [Suspect]
     Dosage: 500MG PER DAY
     Route: 048
     Dates: start: 19960101

REACTIONS (10)
  - ABDOMINAL PAIN UPPER [None]
  - DISCOMFORT [None]
  - ERYTHEMA [None]
  - GENITAL LESION [None]
  - INFLUENZA LIKE ILLNESS [None]
  - LOCAL SWELLING [None]
  - LOOSE STOOLS [None]
  - PAIN [None]
  - SWELLING [None]
  - THERAPEUTIC RESPONSE DECREASED [None]
